FAERS Safety Report 20684653 (Version 1)
Quarter: 2022Q2

REPORT INFORMATION
  Report Type: Spontaneous
  Country: US (occurrence: None)
  Receive Date: 20220406
  Receipt Date: 20220406
  Transmission Date: 20220721
  Serious: Yes (unspecified)
  Sender: FDA-Public Use
  Company Number: None

PATIENT
  Age: 27 Year
  Weight: 72 kg

DRUGS (4)
  1. AMOXICILLIN [Suspect]
     Active Substance: AMOXICILLIN
     Indication: Antibiotic prophylaxis
     Dosage: OTHER QUANTITY : 21 CAPSULE(S);?FREQUENCY : 3 TIMES A DAY;?
     Route: 048
     Dates: start: 20220330, end: 20220405
  2. PAXIL [Concomitant]
     Active Substance: PAROXETINE HYDROCHLORIDE
  3. NERVOUS SYSTEM TONIC [Concomitant]
  4. ZYRTEC [Concomitant]
     Active Substance: CETIRIZINE HYDROCHLORIDE

REACTIONS (2)
  - Panic attack [None]
  - Dissociation [None]

NARRATIVE: CASE EVENT DATE: 20220402
